FAERS Safety Report 4290011-1 (Version None)
Quarter: 2004Q1

REPORT INFORMATION
  Report Type: 
  Country: None (occurrence: None)
  Receive Date: 20040206
  Receipt Date: 20040108
  Transmission Date: 20041129
  Serious: Yes (Hospitalization)
  Sender: FDA-Public Use
  Company Number: 2004IM000076

PATIENT
  Age: 39 Year
  Sex: Male

DRUGS (2)
  1. INFERAX   (INERFERON ALFACON-1) [Suspect]
     Indication: CHRONIC HEPATITIS
     Dosage: 9 UG; QD; SUBCUTANEOUS
     Route: 058
     Dates: start: 20030117
  2. RIBAVIRIN [Suspect]
     Indication: HEPATITIS C
     Dosage: 1000 MG; QD; ORAL
     Route: 048
     Dates: start: 20030220

REACTIONS (1)
  - TESTICULAR SEMINOMA (PURE) [None]
